FAERS Safety Report 17623122 (Version 1)
Quarter: 2020Q2

REPORT INFORMATION
  Report Type: Spontaneous
  Country: US (occurrence: US)
  Receive Date: 20200403
  Receipt Date: 20200403
  Transmission Date: 20200713
  Serious: Yes (Other)
  Sender: FDA-Public Use
  Company Number: US-ROCHE-2574775

PATIENT
  Sex: Female
  Weight: 111.13 kg

DRUGS (3)
  1. NEURONTIN [Suspect]
     Active Substance: GABAPENTIN
     Indication: NEURALGIA
     Dosage: IN THE MORNING. ON AN UNKNOWN DATE IN FEB/2020, PATIENT RECEIVED THE LAST DOSE OF GABAPENTIN
     Route: 048
     Dates: start: 2007
  2. VALIUM [Suspect]
     Active Substance: DIAZEPAM
     Indication: PRODUCT USED FOR UNKNOWN INDICATION
     Route: 065
  3. GABAPENTIN. [Suspect]
     Active Substance: GABAPENTIN
     Indication: NEURALGIA
     Dosage: DOSE UNKNOWN BUT STATED THAT IT WAS SUPPOSED TO BE TWICE A DAY
     Route: 065
     Dates: start: 2007, end: 2007

REACTIONS (2)
  - Drug hypersensitivity [Not Recovered/Not Resolved]
  - Breast cyst [Unknown]

NARRATIVE: CASE EVENT DATE: 2007
